FAERS Safety Report 8359875-6 (Version None)
Quarter: 2012Q2

REPORT INFORMATION
  Report Type: 
  Country: None (occurrence: None)
  Receive Date: 20120514
  Receipt Date: 20120514
  Transmission Date: 20120825
  Serious: Yes (Other)
  Sender: FDA-Public Use
  Company Number: None

PATIENT
  Age: 49 Year
  Sex: Female
  Weight: 88.4514 kg

DRUGS (2)
  1. NUCYNTA [Concomitant]
  2. SPRIX [Suspect]

REACTIONS (4)
  - FACE INJURY [None]
  - CHEST DISCOMFORT [None]
  - ABDOMINAL DISTENSION [None]
  - WEIGHT INCREASED [None]
